FAERS Safety Report 5531759-8 (Version None)
Quarter: 2007Q4

REPORT INFORMATION
  Report Type: 
  Country: None (occurrence: None)
  Receive Date: 20071203
  Receipt Date: 20071121
  Transmission Date: 20080405
  Serious: Yes (Death)
  Sender: FDA-Public Use
  Company Number: JP-BAYER-200710898BYL

PATIENT
  Age: 52 Year
  Sex: Female
  Weight: 49 kg

DRUGS (1)
  1. ASPIRIN [Suspect]
     Route: 048

REACTIONS (7)
  - ABDOMINAL PAIN [None]
  - BRAIN OEDEMA [None]
  - COMA [None]
  - CONVULSION [None]
  - DRUG TOXICITY [None]
  - PULMONARY OEDEMA [None]
  - VOMITING [None]
